FAERS Safety Report 9461189 (Version 1)
Quarter: 2013Q3

REPORT INFORMATION
  Report Type: Spontaneous
  Country: US (occurrence: None)
  Receive Date: 20130814
  Receipt Date: 20130814
  Transmission Date: 20140515
  Serious: Yes (Other)
  Sender: FDA-Public Use
  Company Number: None

PATIENT
  Age: 8 Year
  Sex: Male

DRUGS (1)
  1. TRILEPTAL [Suspect]
     Indication: CONVULSION
     Dosage: TWO WEEKS BEFORE DATE OF EVENT.
     Route: 048

REACTIONS (4)
  - Rash erythematous [None]
  - Urticaria [None]
  - Pruritus [None]
  - Skin warm [None]
